FAERS Safety Report 6335802-8 (Version None)
Quarter: 2009Q3

REPORT INFORMATION
  Report Type: 
  Country: None (occurrence: None)
  Receive Date: 20090831
  Receipt Date: 20090826
  Transmission Date: 20100115
  Serious: Yes (Death, Hospitalization, Other)
  Sender: FDA-Public Use
  Company Number: GB-ABBOTT-09P-167-0593618-00

PATIENT
  Sex: Female

DRUGS (1)
  1. KLARICID [Suspect]
     Indication: PNEUMONIA

REACTIONS (8)
  - CYSTITIS [None]
  - DELIRIUM [None]
  - FAECALOMA [None]
  - HALLUCINATION [None]
  - LOWER RESPIRATORY TRACT INFECTION [None]
  - PHARYNGEAL OEDEMA [None]
  - PNEUMONIA [None]
  - SWOLLEN TONGUE [None]
